FAERS Safety Report 5095082-0 (Version None)
Quarter: 2006Q3

REPORT INFORMATION
  Report Type: 
  Country: None (occurrence: None)
  Receive Date: 20060901
  Receipt Date: 20001213
  Transmission Date: 20061208
  Serious: Yes (Hospitalization, Other)
  Sender: FDA-Public Use
  Company Number: JP-NOVOPROD-206764

PATIENT
  Age: 5 Year
  Sex: Male
  Weight: 14 kg

DRUGS (4)
  1. CINAL [Concomitant]
     Route: 048
     Dates: start: 20001031, end: 20001113
  2. TEPRENONE [Concomitant]
     Route: 048
     Dates: start: 20001031, end: 20001113
  3. NORDITROPIN SIMPLEXX [Suspect]
     Indication: GROWTH HORMONE DEFICIENCY
     Route: 058
     Dates: start: 20000713, end: 20001113
  4. NORDITROPIN? PENSET? [Suspect]
     Indication: GROWTH HORMONE DEFICIENCY
     Route: 058
     Dates: start: 20000602, end: 20000712

REACTIONS (1)
  - ACUTE LYMPHOCYTIC LEUKAEMIA [None]
